FAERS Safety Report 14015584 (Version 4)
Quarter: 2018Q4

REPORT INFORMATION
  Report Type: Report from Study
  Country: None (occurrence: US)
  Receive Date: 20170927
  Receipt Date: 20181025
  Transmission Date: 20190204
  Serious: Yes (Other)
  Sender: FDA-Public Use
  Company Number: US-ABBVIE-17K-163-2055586-00

PATIENT
  Age: 61 Year
  Sex: Female

DRUGS (4)
  1. HUMIRA [Suspect]
     Active Substance: ADALIMUMAB
     Route: 058
  2. HUMIRA [Suspect]
     Active Substance: ADALIMUMAB
     Indication: PSORIATIC ARTHROPATHY
     Dosage: DAY 8
     Route: 058
     Dates: start: 20170602, end: 20170602
  3. HUMIRA [Suspect]
     Active Substance: ADALIMUMAB
     Indication: PSORIASIS
     Route: 058
     Dates: start: 201706, end: 201710
  4. HUMIRA [Suspect]
     Active Substance: ADALIMUMAB
     Indication: RHEUMATOID ARTHRITIS
     Dosage: DAY 1
     Route: 058
     Dates: start: 20170526, end: 20170526

REACTIONS (20)
  - Cartilage injury [Unknown]
  - Hyperhidrosis [Unknown]
  - Joint dislocation [Recovering/Resolving]
  - Skin discolouration [Unknown]
  - Chest pain [Unknown]
  - Incorrect dose administered [Unknown]
  - Rhinorrhoea [Unknown]
  - Fall [Unknown]
  - Injection site haemorrhage [Recovered/Resolved]
  - Nail psoriasis [Not Recovered/Not Resolved]
  - Erythema [Unknown]
  - Accident at work [Recovering/Resolving]
  - Injection site bruising [Not Recovered/Not Resolved]
  - Testicular injury [Unknown]
  - Joint injury [Unknown]
  - Testicular swelling [Recovered/Resolved]
  - Ligament sprain [Unknown]
  - Scar [Unknown]
  - Headache [Not Recovered/Not Resolved]
  - Atrial fibrillation [Not Recovered/Not Resolved]

NARRATIVE: CASE EVENT DATE: 2017
